FAERS Safety Report 7877716-8 (Version None)
Quarter: 2011Q4

REPORT INFORMATION
  Report Type: 
  Country: None (occurrence: None)
  Receive Date: 20111031
  Receipt Date: 20111031
  Transmission Date: 20120403
  Serious: No
  Sender: FDA-Public Use
  Company Number: None

PATIENT
  Sex: Male
  Weight: 111.13 kg

DRUGS (1)
  1. METFORMIN HCL [Suspect]
     Dates: start: 20110816, end: 20111027

REACTIONS (3)
  - PRODUCT SUBSTITUTION ISSUE [None]
  - BLOOD GLUCOSE INCREASED [None]
  - DRUG INEFFECTIVE [None]
